FAERS Safety Report 7572057-0 (Version None)
Quarter: 2011Q2

REPORT INFORMATION
  Report Type: 
  Country: None (occurrence: None)
  Receive Date: 20110624
  Receipt Date: 20110623
  Transmission Date: 20111010
  Serious: Yes (Other)
  Sender: FDA-Public Use
  Company Number: CHPA2011GB06951

PATIENT
  Sex: Female

DRUGS (5)
  1. NICOTINE [Suspect]
     Indication: SMOKING CESSATION THERAPY
     Dosage: 2 MG, UNK
     Route: 002
     Dates: start: 20030601
  2. ASCORBIC ACID [Concomitant]
     Dosage: UNK
     Route: 065
  3. ALOE VERA [Concomitant]
     Dosage: UNK
     Route: 065
  4. VITAMIN D [Concomitant]
     Dosage: UNK
     Route: 065
  5. NICORETTE ^HOECHST MARION ROUSSEL^ [Concomitant]
     Dosage: UNK
     Route: 065

REACTIONS (9)
  - DRY EYE [None]
  - CONDITION AGGRAVATED [None]
  - SJOGREN'S SYNDROME [None]
  - DRY MOUTH [None]
  - GINGIVAL RECESSION [None]
  - INCORRECT DRUG ADMINISTRATION DURATION [None]
  - MOUTH ULCERATION [None]
  - NICOTINE DEPENDENCE [None]
  - LOOSE TOOTH [None]
